FAERS Safety Report 14936488 (Version 3)
Quarter: 2018Q3

REPORT INFORMATION
  Report Type: Report from Study
  Country: ES (occurrence: ES)
  Receive Date: 20180525
  Receipt Date: 20180907
  Transmission Date: 20181010
  Serious: Yes (Death, Life-Threatening, Hospitalization, Other)
  Sender: FDA-Public Use
  Company Number: ES-TEVA-2018-ES-895933

PATIENT
  Age: 61 Year
  Sex: Male
  Weight: 75 kg

DRUGS (44)
  1. POMALIDOMIDE [Suspect]
     Active Substance: POMALIDOMIDE
     Route: 048
     Dates: start: 20150616, end: 20150707
  2. FENTANILO [Concomitant]
     Active Substance: FENTANYL
     Indication: BACK PAIN
     Dosage: 16.6667 MICROGRAM
     Route: 065
     Dates: start: 20150519
  3. G?CSF [Concomitant]
     Active Substance: GRANULOCYTE COLONY-STIMULATING FACTOR NOS
     Indication: PRODUCT USED FOR UNKNOWN INDICATION
     Dosage: 300/48 MICROGRAMS/48 HOURS
     Route: 065
     Dates: start: 20150508, end: 20150706
  4. G?CSF [Concomitant]
     Active Substance: GRANULOCYTE COLONY-STIMULATING FACTOR NOS
     Dosage: 300 MICROGRAM DAILY;
     Route: 065
     Dates: start: 20150501, end: 20150506
  5. OMEPRAZOLE. [Concomitant]
     Active Substance: OMEPRAZOLE
     Indication: GASTRITIS PROPHYLAXIS
     Route: 065
     Dates: start: 20150203
  6. ALBUMINE [Concomitant]
     Active Substance: ALBUMIN HUMAN
     Route: 065
     Dates: start: 20150705, end: 20150706
  7. ENOXAPARIN [Concomitant]
     Active Substance: ENOXAPARIN
     Route: 065
     Dates: start: 20150603, end: 20150605
  8. ENOXAPARIN [Concomitant]
     Active Substance: ENOXAPARIN
     Route: 065
     Dates: start: 20150526, end: 20150630
  9. ENOXAPARIN [Concomitant]
     Active Substance: ENOXAPARIN
     Route: 065
     Dates: start: 20150420, end: 20150501
  10. CALCIUM VITAM D [Concomitant]
     Indication: PROPHYLAXIS
     Route: 065
     Dates: start: 20150203
  11. NISTATINA [Concomitant]
     Active Substance: NYSTATIN
     Indication: INFECTION PROPHYLAXIS
     Route: 002
     Dates: start: 20150502, end: 20150514
  12. LACTULOSE. [Concomitant]
     Active Substance: LACTULOSE
     Indication: CONSTIPATION
     Route: 065
     Dates: start: 20150710, end: 20150712
  13. LYRICA [Concomitant]
     Active Substance: PREGABALIN
     Indication: NEURALGIA
     Route: 065
  14. G?CSF [Concomitant]
     Active Substance: GRANULOCYTE COLONY-STIMULATING FACTOR NOS
     Indication: PRODUCT USED FOR UNKNOWN INDICATION
     Dosage: 300 MICROGRAM DAILY;
     Route: 065
     Dates: start: 20150501, end: 20150506
  15. LEVOFLOXACINO [Concomitant]
     Active Substance: LEVOFLOXACIN
     Dosage: 1000 MILLIGRAM DAILY;
     Route: 065
     Dates: start: 20150620, end: 20150628
  16. RED BLOOD CELLS [Concomitant]
     Active Substance: HUMAN RED BLOOD CELL
     Indication: ANAEMIA
     Route: 065
     Dates: start: 20150429, end: 20150712
  17. ALBUMINE [Concomitant]
     Active Substance: ALBUMIN HUMAN
     Route: 065
     Dates: start: 20150707, end: 20150707
  18. ENOXAPARIN [Concomitant]
     Active Substance: ENOXAPARIN
     Route: 065
     Dates: start: 20150522, end: 20150525
  19. DIFLUCAN [Concomitant]
     Active Substance: FLUCONAZOLE
     Indication: ANTIFUNGAL PROPHYLAXIS
     Route: 065
     Dates: start: 20150708, end: 20150713
  20. LORAZEPAM. [Concomitant]
     Active Substance: LORAZEPAM
     Indication: ANXIETY
     Route: 065
     Dates: start: 20150504, end: 20150504
  21. METFORMINA [Concomitant]
     Active Substance: METFORMIN HYDROCHLORIDE
     Indication: DIABETES PROPHYLAXIS
     Route: 065
     Dates: start: 20141229, end: 20150501
  22. POMALIDOMIDE [Suspect]
     Active Substance: POMALIDOMIDE
     Indication: PLASMA CELL MYELOMA
     Route: 048
     Dates: start: 20150423, end: 20150430
  23. FENTANILO [Concomitant]
     Active Substance: FENTANYL
     Dosage: 25 MICROGRAM
     Route: 065
     Dates: start: 20150203, end: 20150518
  24. DIFLUCAN [Concomitant]
     Active Substance: FLUCONAZOLE
     Indication: ANTIFUNGAL PROPHYLAXIS
     Route: 065
     Dates: start: 20150714
  25. PREGABALINA [Concomitant]
     Active Substance: PREGABALIN
     Indication: BACK PAIN
     Route: 065
     Dates: start: 20150203
  26. PARACETAMOL [Concomitant]
     Active Substance: ACETAMINOPHEN
     Indication: PYREXIA
     Route: 065
     Dates: start: 20150609, end: 20150609
  27. ACTRAPID [Concomitant]
     Active Substance: INSULIN HUMAN
     Indication: DIABETES PROPHYLAXIS
     Route: 065
     Dates: start: 20150502, end: 20150514
  28. FLUMAZENIL. [Concomitant]
     Active Substance: FLUMAZENIL
     Indication: LETHARGY
     Route: 065
     Dates: start: 20150501, end: 20150501
  29. POMALIDOMIDE [Suspect]
     Active Substance: POMALIDOMIDE
     Route: 048
     Dates: start: 20150519, end: 20150531
  30. DEXAMETHASONE. [Suspect]
     Active Substance: DEXAMETHASONE
     Route: 065
     Dates: start: 20150423, end: 20150630
  31. ALBUMINE [Concomitant]
     Active Substance: ALBUMIN HUMAN
     Indication: HYPOALBUMINAEMIA
     Route: 065
     Dates: start: 20150508, end: 20150513
  32. ENOXAPARIN [Concomitant]
     Active Substance: ENOXAPARIN
     Indication: THROMBOSIS PROPHYLAXIS
     Route: 065
     Dates: start: 20150609, end: 20150610
  33. ZOLEDRONIC ACID [Concomitant]
     Active Substance: ZOLEDRONIC ACID
     Indication: PROPHYLAXIS
     Route: 065
     Dates: start: 20150522, end: 20150630
  34. CLORHEXIDINA [Concomitant]
     Indication: INFECTION PROPHYLAXIS
     Route: 065
     Dates: start: 20150502, end: 20150514
  35. LEVOFLOXACINO [Concomitant]
     Active Substance: LEVOFLOXACIN
     Indication: INFECTION PROPHYLAXIS
     Dosage: 500 MILLIGRAM DAILY; 500 MILLIGRAM
     Route: 065
     Dates: start: 20150609, end: 20150628
  36. DIFLUCAN [Concomitant]
     Active Substance: FLUCONAZOLE
     Route: 065
     Dates: start: 20150708, end: 20150713
  37. PLATELETS [Concomitant]
     Active Substance: HUMAN PLATELET, ALLOGENIC
     Indication: THROMBOCYTOPENIA
     Route: 065
     Dates: start: 20150420, end: 20150707
  38. ACICLOVIR [Concomitant]
     Active Substance: ACYCLOVIR
     Indication: ANTIVIRAL PROPHYLAXIS
     Route: 065
     Dates: start: 20150208
  39. DEXAMETHASONE. [Suspect]
     Active Substance: DEXAMETHASONE
     Indication: PLASMA CELL MYELOMA
     Route: 065
     Dates: start: 200802, end: 20150413
  40. ZOLEDRONIC ACID [Concomitant]
     Active Substance: ZOLEDRONIC ACID
     Route: 065
     Dates: start: 20150420, end: 20150420
  41. LEVOFLOXACINO [Concomitant]
     Active Substance: LEVOFLOXACIN
     Dosage: 1000 MILLIGRAM DAILY;
     Route: 065
     Dates: start: 20150620, end: 20150628
  42. SULFAMETOXAZOL [Concomitant]
     Active Substance: SULFAMETHOXAZOLE
     Indication: INFECTION PROPHYLAXIS
     Dosage: 457.1429 MILLIGRAM
     Route: 065
     Dates: start: 20150508, end: 20150708
  43. ZOLEDRONIC ACID [Concomitant]
     Active Substance: ZOLEDRONIC ACID
     Indication: PROPHYLAXIS
     Route: 065
     Dates: start: 20150420, end: 20150420
  44. FUROSEMIDA [Concomitant]
     Active Substance: FUROSEMIDE
     Indication: DIURETIC THERAPY
     Route: 065
     Dates: start: 20150508, end: 20150508

REACTIONS (9)
  - Neutropenia [Recovered/Resolved]
  - Plasma cell myeloma [Fatal]
  - Neutropenia [Recovered/Resolved]
  - Pneumonia pneumococcal [Recovered/Resolved]
  - Neutropenia [Recovered/Resolved]
  - Neutropenia [Recovered/Resolved]
  - Metastases to liver [Fatal]
  - Malignant neoplasm of unknown primary site [Not Recovered/Not Resolved]
  - Pneumonia pneumococcal [Recovered/Resolved]

NARRATIVE: CASE EVENT DATE: 20150501
